FAERS Safety Report 6231705-8 (Version None)
Quarter: 2009Q2

REPORT INFORMATION
  Report Type: 
  Country: None (occurrence: None)
  Receive Date: 20090611
  Receipt Date: 20090603
  Transmission Date: 20091009
  Serious: Yes (Disabling)
  Sender: FDA-Public Use
  Company Number: TPG2009A00536

PATIENT
  Age: 58 Year
  Sex: Female

DRUGS (6)
  1. PIOGLITAZONE HCL [Suspect]
     Indication: DIABETIC RETINOPATHY
     Dosage: 18/850 MG PER ORAL
     Route: 048
     Dates: start: 20080101, end: 20080401
  2. PIOGLITAZONE HCL [Suspect]
     Indication: MICROALBUMINURIA
     Dosage: 18/850 MG PER ORAL
     Route: 048
     Dates: start: 20080101, end: 20080401
  3. PIOGLITAZONE HCL [Suspect]
     Indication: DIABETIC RETINOPATHY
     Dosage: 18/850 MG PER ORAL
     Route: 048
     Dates: start: 20080401
  4. PIOGLITAZONE HCL [Suspect]
     Indication: MICROALBUMINURIA
     Dosage: 18/850 MG PER ORAL
     Route: 048
     Dates: start: 20080401
  5. OLMESARTAN MEDOXOMIL AND HYDROCHLOROTHIZIDE [Suspect]
  6. TORSEMIDE [Concomitant]

REACTIONS (3)
  - GLYCOSYLATED HAEMOGLOBIN INCREASED [None]
  - NEUROPATHIC ARTHROPATHY [None]
  - WEIGHT INCREASED [None]
